FAERS Safety Report 9638567 (Version 2)
Quarter: 2013Q4

REPORT INFORMATION
  Report Type: Spontaneous
  Country: US (occurrence: None)
  Receive Date: 20131018
  Receipt Date: 20131023
  Transmission Date: 20140711
  Serious: Yes (Hospitalization, Other)
  Sender: FDA-Public Use
  Company Number: ACO_38740_2013

PATIENT
  Age: 57 Year
  Sex: Female

DRUGS (3)
  1. AMPYRA (DALFAMPRIDINE) TABLET [Suspect]
     Indication: GAIT DISTURBANCE
     Route: 048
     Dates: start: 201011, end: 20130916
  2. TECFIDERA [Suspect]
     Indication: PRODUCT USED FOR UNKNOWN INDICATION
  3. TYSABRI (NATALIZUMAB) [Concomitant]

REACTIONS (3)
  - Sepsis [None]
  - Cystitis [None]
  - Urinary tract infection [None]
